FAERS Safety Report 9286909 (Version 1)
Quarter: 2013Q2

REPORT INFORMATION
  Report Type: Spontaneous
  Country: US (occurrence: US)
  Receive Date: 20130513
  Receipt Date: 20130513
  Transmission Date: 20140414
  Serious: No
  Sender: FDA-Public Use
  Company Number: US-PFIZER INC-2013145813

PATIENT
  Age: 79 Year
  Sex: Female
  Weight: 63.49 kg

DRUGS (4)
  1. LIPITOR [Suspect]
     Indication: CARDIAC DISORDER
     Dosage: 40 MG, 1X/DAY
     Route: 048
     Dates: start: 2005
  2. LIPITOR [Suspect]
     Indication: HYPERTENSION
     Dosage: 20 MG, 1X/DAY
     Route: 048
  3. SIMVASTATIN [Concomitant]
     Dosage: 20 MG, 1X/DAY
  4. LISINOPRIL [Concomitant]
     Indication: HYPERTENSION
     Dosage: TWO 10 MG TABLETS, 1X/DAY
     Route: 048

REACTIONS (1)
  - Glucose tolerance impaired [Not Recovered/Not Resolved]
